FAERS Safety Report 6416884-1 (Version None)
Quarter: 2009Q4

REPORT INFORMATION
  Report Type: 
  Country: None (occurrence: None)
  Receive Date: 20091023
  Receipt Date: 20091009
  Transmission Date: 20100525
  Serious: Yes (Hospitalization, Other)
  Sender: FDA-Public Use
  Company Number: PAR_03218_2009

PATIENT
  Age: 46 Year
  Sex: Male

DRUGS (5)
  1. IBUPROFEN [Suspect]
     Indication: CHILLS
     Dosage: 400 MG 3X ORAL
     Route: 048
     Dates: start: 20080708, end: 20080709
  2. IBUPROFEN [Suspect]
     Indication: MYALGIA
     Dosage: 400 MG 3X ORAL
     Route: 048
     Dates: start: 20080708, end: 20080709
  3. IBUPROFEN [Suspect]
     Indication: OROPHARYNGEAL DISCOMFORT
     Dosage: 400 MG 3X ORAL
     Route: 048
     Dates: start: 20080708, end: 20080709
  4. CELLCEPT [Suspect]
     Indication: MULTIPLE SCLEROSIS
     Dosage: 2 G
     Dates: end: 20080701
  5. CELLCEPT [Suspect]
     Indication: MULTIPLE SCLEROSIS
     Dosage: 2 G
     Dates: start: 20080714

REACTIONS (6)
  - AGRANULOCYTOSIS [None]
  - BLOOD BILIRUBIN UNCONJUGATED INCREASED [None]
  - BLOOD IMMUNOGLOBULIN G INCREASED [None]
  - MONOCYTOSIS [None]
  - NEUTROPHIL COUNT DECREASED [None]
  - PYREXIA [None]
